FAERS Safety Report 8392589-5 (Version None)
Quarter: 2012Q2

REPORT INFORMATION
  Report Type: 
  Country: None (occurrence: None)
  Receive Date: 20120529
  Receipt Date: 20120515
  Transmission Date: 20120825
  Serious: Yes (Other)
  Sender: FDA-Public Use
  Company Number: US-JNJFOC-20120515629

PATIENT
  Sex: Female
  Weight: 56.7 kg

DRUGS (6)
  1. FENTANYL-100 [Suspect]
     Indication: PAIN
     Route: 062
     Dates: start: 20110101, end: 20110101
  2. OXYCODONE HCL [Suspect]
     Route: 048
     Dates: start: 20110101
  3. DURAGESIC-100 [Suspect]
     Indication: PAIN
     Route: 062
     Dates: start: 20120501
  4. FENTANYL CITRATE [Suspect]
     Indication: PAIN
     Route: 062
     Dates: start: 20120101, end: 20120501
  5. OXYCODONE HCL [Suspect]
     Indication: PAIN
     Route: 048
     Dates: start: 19940101, end: 20110101
  6. XANAX [Concomitant]
     Indication: ANXIETY
     Route: 048
     Dates: start: 20100101

REACTIONS (5)
  - DRUG DOSE OMISSION [None]
  - FATIGUE [None]
  - IRRITABILITY [None]
  - WITHDRAWAL SYNDROME [None]
  - PRODUCT QUALITY ISSUE [None]
